FAERS Safety Report 8467054-7 (Version None)
Quarter: 2012Q2

REPORT INFORMATION
  Report Type: 
  Country: None (occurrence: None)
  Receive Date: 20120626
  Receipt Date: 20120621
  Transmission Date: 20120825
  Serious: Yes (Death, Life-Threatening, Hospitalization)
  Sender: FDA-Public Use
  Company Number: US-ASTRAZENECA-2012SE39571

PATIENT
  Age: 27696 Day
  Sex: Female

DRUGS (6)
  1. CALCIUM [Concomitant]
     Indication: OSTEOPOROSIS
     Route: 048
  2. STUDY PROCEDURE [Suspect]
     Indication: CORONARY ARTERY DISEASE
     Route: 065
  3. EVEROLIMUS [Concomitant]
  4. VITAMIN D [Concomitant]
     Indication: OSTEOPOROSIS
     Route: 048
  5. ASPIRIN [Concomitant]
     Route: 048
  6. AZD6140 [Suspect]
     Indication: CORONARY ARTERY DISEASE
     Route: 048
     Dates: start: 20110315, end: 20120604

REACTIONS (3)
  - PANCYTOPENIA [None]
  - CARDIAC ARREST [None]
  - VIITH NERVE PARALYSIS [None]
